FAERS Safety Report 6186081-6 (Version None)
Quarter: 2009Q2

REPORT INFORMATION
  Report Type: 
  Country: None (occurrence: None)
  Receive Date: 20090507
  Receipt Date: 20090507
  Transmission Date: 20091009
  Serious: Yes (Other)
  Sender: FDA-Public Use
  Company Number: None

PATIENT
  Age: 89 Year
  Sex: Male
  Weight: 59.4212 kg

DRUGS (1)
  1. CENTRUM SILVER MULTI-VITAMIN [Suspect]
     Indication: MEDICAL DIET
     Dosage: 1 TABLET DAILY
     Dates: start: 20090401

REACTIONS (4)
  - CHOKING SENSATION [None]
  - DYSPHAGIA [None]
  - PRODUCT COATING ISSUE [None]
  - TABLET ISSUE [None]
